FAERS Safety Report 8172950-4 (Version None)
Quarter: 2012Q1

REPORT INFORMATION
  Report Type: 
  Country: None (occurrence: None)
  Receive Date: 20120229
  Receipt Date: 20120217
  Transmission Date: 20120608
  Serious: Yes (Life-Threatening, Hospitalization)
  Sender: FDA-Public Use
  Company Number: TR-BRISTOL-MYERS SQUIBB COMPANY-16417164

PATIENT
  Age: 34 Year
  Sex: Female

DRUGS (2)
  1. METFORMIN HCL [Suspect]
     Dosage: 1DF:50DF (50000MG) 50TABS
  2. SERTRALINE HYDROCHLORIDE [Suspect]
     Dosage: 1DF: 10DF (500MG) 10TABS

REACTIONS (3)
  - LACTIC ACIDOSIS [None]
  - SUICIDE ATTEMPT [None]
  - INTENTIONAL OVERDOSE [None]
